FAERS Safety Report 18612625 (Version 1)
Quarter: 2020Q4

REPORT INFORMATION
  Report Type: Spontaneous
  Country: US (occurrence: US)
  Receive Date: 20201214
  Receipt Date: 20201214
  Transmission Date: 20210114
  Serious: No
  Sender: FDA-Public Use
  Company Number: US-ELI_LILLY_AND_COMPANY-US202012003338

PATIENT

DRUGS (1)
  1. EMGALITY [Suspect]
     Active Substance: GALCANEZUMAB-GNLM
     Indication: PRODUCT USED FOR UNKNOWN INDICATION
     Dosage: UNK, UNKNOWN
     Route: 065
     Dates: start: 202008

REACTIONS (5)
  - Injection site mass [Unknown]
  - Injection site erythema [Unknown]
  - Erythema [Unknown]
  - Injection site swelling [Unknown]
  - Injection site induration [Unknown]

NARRATIVE: CASE EVENT DATE: 20201203
